FAERS Safety Report 9992794 (Version 2)
Quarter: 2014Q1

REPORT INFORMATION
  Report Type: Report from Study
  Country: US (occurrence: US)
  Receive Date: 20140310
  Receipt Date: 20140310
  Transmission Date: 20141002
  Serious: Yes (Other)
  Sender: FDA-Public Use
  Company Number: US-ABBVIE-13P-163-1140879-00

PATIENT
  Age: 25 Year
  Sex: Female
  Weight: 69.01 kg

DRUGS (5)
  1. LUPRON DEPOT [Suspect]
     Indication: ENDOMETRIOSIS
     Dates: start: 2009
  2. LUPRON DEPOT [Suspect]
     Dates: start: 20130819
  3. TOPAMAX [Concomitant]
     Indication: PRODUCT USED FOR UNKNOWN INDICATION
  4. TOPAMAX [Concomitant]
     Indication: PRODUCT USED FOR UNKNOWN INDICATION
  5. TOPAMAX [Concomitant]
     Indication: PRODUCT USED FOR UNKNOWN INDICATION

REACTIONS (5)
  - Endometriosis [Not Recovered/Not Resolved]
  - Pain in extremity [Recovering/Resolving]
  - Endometrial disorder [Not Recovered/Not Resolved]
  - Uterine leiomyoma [Recovered/Resolved]
  - Abdominal adhesions [Not Recovered/Not Resolved]
